FAERS Safety Report 8584930-5 (Version None)
Quarter: 2012Q3

REPORT INFORMATION
  Report Type: 
  Country: None (occurrence: None)
  Receive Date: 20120802
  Receipt Date: 20120802
  Transmission Date: 20120928
  Serious: Yes (Hospitalization)
  Sender: FDA-Public Use
  Company Number: None

PATIENT
  Age: 90 Year
  Sex: Male
  Weight: 68 kg

DRUGS (2)
  1. CLINDAMYCIN [Suspect]
     Indication: UPPER RESPIRATORY TRACT INFECTION
     Dosage: 60 MG TID PO
     Route: 048
     Dates: start: 20120713, end: 20120713
  2. METRONIDAZOLE [Suspect]
     Indication: UPPER RESPIRATORY TRACT INFECTION
     Dosage: 500 MG QID PO
     Route: 048
     Dates: start: 20120713, end: 20120713

REACTIONS (1)
  - ANGIOEDEMA [None]
